FAERS Safety Report 7293477 (Version 2)
Quarter: 2013Q3

REPORT INFORMATION
  Report Type: Spontaneous
  Country: None (occurrence: None)
  Receive Date: 20100203
  Receipt Date: 20130705
  Transmission Date: 20140515
  Serious: Yes (Hospitalization, Other)
  Sender: FDA-Public Use
  Company Number: AUR-APL-2010-00169

PATIENT
  Age: 65 Year
  Sex: Female

DRUGS (5)
  1. LEVETIRACETAM (LEVETIRACETAM) [Suspect]
     Indication: EPILEPSY
     Dosage: 750MG - BID
  2. DEXAMETHASONE [Concomitant]
     Indication: DEPRESSION
     Dosage: 10MG - DAILY
  3. MANNITOL [Concomitant]
  4. CEFAZOLIN (CEFAZOLIN) [Concomitant]
  5. ENOXAPARIN SODIUM [Concomitant]

REACTIONS (14)
  - Epilepsy [None]
  - Meningioma [None]
  - Pancytopenia [None]
  - Bronchopneumonia [None]
  - Bone marrow failure [None]
  - Jaundice [None]
  - Liver abscess [None]
  - Cholelithiasis [None]
  - Bile duct stone [None]
  - Pseudomonas infection [None]
  - Enterococcal infection [None]
  - Staphylococcal infection [None]
  - Drug interaction [None]
  - Vomiting [None]
